FAERS Safety Report 11420759 (Version 2)
Quarter: 2015Q3

REPORT INFORMATION
  Report Type: Spontaneous
  Country: TR (occurrence: TR)
  Receive Date: 20150826
  Receipt Date: 20150914
  Transmission Date: 20151125
  Serious: Yes (Other)
  Sender: FDA-Public Use
  Company Number: TR-ELI_LILLY_AND_COMPANY-TR201508007005

PATIENT
  Age: 37 Year
  Sex: Male

DRUGS (1)
  1. CIALIS [Suspect]
     Active Substance: TADALAFIL
     Indication: PRODUCT USED FOR UNKNOWN INDICATION
     Dosage: UNK
     Route: 065
     Dates: start: 201503, end: 201504

REACTIONS (2)
  - Nephrolithiasis [Recovered/Resolved]
  - Renal impairment [Recovered/Resolved]
